FAERS Safety Report 10254545 (Version 2)
Quarter: 2014Q2

REPORT INFORMATION
  Report Type: Spontaneous
  Country: US (occurrence: US)
  Receive Date: 20140624
  Receipt Date: 20140627
  Transmission Date: 20141212
  Serious: Yes (Other)
  Sender: FDA-Public Use
  Company Number: US-RB-066826-14

PATIENT
  Age: 88 Year
  Sex: Male

DRUGS (1)
  1. MUCINEX DM MAX 1200MG [Suspect]
     Indication: EMPHYSEMA
     Dosage: TOOK 1 TABLET ON 13-JUN-2014
     Route: 048
     Dates: start: 20140613

REACTIONS (6)
  - Anxiety [Not Recovered/Not Resolved]
  - Nervousness [Not Recovered/Not Resolved]
  - Somnolence [Not Recovered/Not Resolved]
  - Chills [Not Recovered/Not Resolved]
  - Feeling abnormal [Recovered/Resolved]
  - Off label use [Not Recovered/Not Resolved]
